FAERS Safety Report 6449156-X (Version None)
Quarter: 2009Q4

REPORT INFORMATION
  Report Type: 
  Country: None (occurrence: None)
  Receive Date: 20091120
  Receipt Date: 20091113
  Transmission Date: 20100525
  Serious: Yes (Disabling, Other)
  Sender: FDA-Public Use
  Company Number: NL-MERCK-0908NLD00010

PATIENT
  Age: 69 Year
  Sex: Female

DRUGS (1)
  1. VYTORIN [Suspect]
     Indication: HYPERCHOLESTEROLAEMIA
     Route: 048
     Dates: start: 20051030, end: 20090817

REACTIONS (2)
  - HEPATIC FUNCTION ABNORMAL [None]
  - MUSCLE SPASMS [None]
